FAERS Safety Report 8142120 (Version 3)
Quarter: 2013Q2

REPORT INFORMATION
  Report Type: Spontaneous
  Country: US (occurrence: US)
  Receive Date: 20110919
  Receipt Date: 20130405
  Transmission Date: 20140414
  Serious: Yes (Hospitalization, Other)
  Sender: FDA-Public Use
  Company Number: US-ROCHE-802080

PATIENT
  Age: 28 Year
  Sex: Male
  Weight: 93.07 kg

DRUGS (3)
  1. ACCUTANE [Suspect]
     Indication: ACNE
     Route: 065
     Dates: start: 2005, end: 2006
  2. ACCUTANE [Suspect]
     Route: 065
     Dates: start: 20060711, end: 20070916
  3. ACCUTANE [Suspect]
     Route: 065
     Dates: start: 2007, end: 2007

REACTIONS (14)
  - Spinal compression fracture [Unknown]
  - Wrist fracture [Unknown]
  - Crohn^s disease [Unknown]
  - Inflammatory bowel disease [Unknown]
  - Colitis ulcerative [Unknown]
  - Injury [Unknown]
  - Depression [Not Recovered/Not Resolved]
  - Suicidal ideation [Unknown]
  - Pleural effusion [Unknown]
  - Anal fissure [Unknown]
  - Lip dry [Unknown]
  - Dry mouth [Unknown]
  - Chapped lips [Unknown]
  - Epistaxis [Unknown]
